FAERS Safety Report 25779569 (Version 2)
Quarter: 2025Q4

REPORT INFORMATION
  Report Type: Spontaneous
  Country: HK (occurrence: HK)
  Receive Date: 20250909
  Receipt Date: 20251001
  Transmission Date: 20260118
  Serious: Yes (Other)
  Sender: MYLAN
  Company Number: HK-MYLANLABS-2025M1074453

PATIENT
  Age: 77 Year
  Sex: Male

DRUGS (6)
  1. SILDENAFIL [Suspect]
     Active Substance: SILDENAFIL
     Indication: Pulmonary arterial hypertension
     Dosage: 20 MILLIGRAM, BID
     Dates: start: 20240731
  2. SILDENAFIL [Suspect]
     Active Substance: SILDENAFIL
     Dosage: 80 MILLIGRAM, TID
     Dates: start: 202412
  3. MACITENTAN [Concomitant]
     Active Substance: MACITENTAN
     Dosage: 10 MILLIGRAM, QD
     Dates: start: 202408
  4. SELEXIPAG [Concomitant]
     Active Substance: SELEXIPAG
     Dosage: 0.2 MILLIGRAM, BID
     Dates: start: 202501
  5. SELEXIPAG [Concomitant]
     Active Substance: SELEXIPAG
     Dosage: 1.6 MILLIGRAM, BID (OVER 2 MONTHS)
  6. SOTATERCEPT [Concomitant]
     Active Substance: SOTATERCEPT
     Dosage: UNK, 3XW (AFTER FOUR)
     Dates: start: 20250417

REACTIONS (1)
  - Drug ineffective [Recovering/Resolving]
